FAERS Safety Report 7801897-5 (Version None)
Quarter: 2011Q4

REPORT INFORMATION
  Report Type: 
  Country: None (occurrence: None)
  Receive Date: 20111007
  Receipt Date: 20110927
  Transmission Date: 20120403
  Serious: Yes (Hospitalization)
  Sender: FDA-Public Use
  Company Number: DE-UCBSA-000019

PATIENT
  Age: 38 Year
  Sex: Female

DRUGS (4)
  1. LACOSAMIDE [Suspect]
     Indication: EPILEPSY
     Route: 048
     Dates: start: 20081114
  2. OXCARBAZEPINE [Interacting]
  3. OXCARBAZEPINE [Interacting]
     Dosage: DOSE REDUCED
  4. TOPIRAMATE [Concomitant]

REACTIONS (3)
  - VOMITING [None]
  - SOMNOLENCE [None]
  - DRUG INTERACTION [None]
